FAERS Safety Report 4326504-8 (Version None)
Quarter: 2004Q1

REPORT INFORMATION
  Report Type: 
  Country: None (occurrence: None)
  Receive Date: 20040323
  Receipt Date: 20031105
  Transmission Date: 20041129
  Serious: Yes (Life-Threatening, Hospitalization)
  Sender: FDA-Public Use
  Company Number: 0300016EN0020P

PATIENT
  Age: 14 Year
  Sex: Female
  Weight: 53 kg

DRUGS (9)
  1. ONCASPAR [Suspect]
     Indication: ACUTE LYMPHOCYTIC LEUKAEMIA
     Dosage: 3850  UNITS IM
     Dates: start: 20030908
  2. PREDNISONE [Concomitant]
  3. VINCRISTINE [Concomitant]
  4. DAUNOMYCIN [Concomitant]
  5. METHOTREXATE [Concomitant]
  6. RANITIDINE [Concomitant]
  7. OVRAL [Concomitant]
  8. SEPTRA [Concomitant]
  9. NYSTATIN [Concomitant]

REACTIONS (1)
  - PANCREATITIS ACUTE [None]
